FAERS Safety Report 5198450-1 (Version None)
Quarter: 2006Q4

REPORT INFORMATION
  Report Type: 
  Country: None (occurrence: None)
  Receive Date: 20061228
  Receipt Date: 20061228
  Transmission Date: 20070319
  Serious: Yes (Hospitalization)
  Sender: FDA-Public Use
  Company Number: None

PATIENT
  Age: 77 Year
  Sex: Male
  Weight: 59 kg

DRUGS (11)
  1. PHENYTOIN SODIUM CAP [Suspect]
     Indication: CONVULSION
     Dosage: 100 Q 8 + 50 BID CHRONIC
  2. LAMICTAL [Concomitant]
  3. DIGOXIN [Concomitant]
  4. AMARYL [Concomitant]
  5. GLUCOPHAGE [Concomitant]
  6. PB [Concomitant]
  7. ACTOS [Concomitant]
  8. ZOCOR [Concomitant]
  9. FLOMAX [Concomitant]
  10. DIOVAN [Concomitant]
  11. COUMADIN [Concomitant]

REACTIONS (4)
  - CONVULSION [None]
  - HYPOGLYCAEMIA [None]
  - PANCYTOPENIA [None]
  - SYSTEMIC LUPUS ERYTHEMATOSUS [None]
